FAERS Safety Report 7282743-8 (Version None)
Quarter: 2011Q1

REPORT INFORMATION
  Report Type: 
  Country: None (occurrence: None)
  Receive Date: 20110128
  Receipt Date: 20110120
  Transmission Date: 20110831
  Serious: Yes (Death)
  Sender: FDA-Public Use
  Company Number: 1000018328

PATIENT
  Age: 86 Year
  Sex: Female

DRUGS (6)
  1. BETA BLOCKER (NOS) (BETA BLOCKER) [Suspect]
  2. DIURETIC (NOS) (DIURETIC) [Suspect]
  3. GLIPIZIDE [Suspect]
  4. DILTIAZEM HCL [Suspect]
  5. CLONIDINE [Suspect]
  6. METFORMIN HCL [Suspect]

REACTIONS (2)
  - RESPIRATORY ARREST [None]
  - CARDIAC ARREST [None]
